APPROVED DRUG PRODUCT: LOPROX
Active Ingredient: CICLOPIROX
Strength: 1%
Dosage Form/Route: SHAMPOO;TOPICAL
Application: N021159 | Product #001
Applicant: BAUSCH HEALTH US LLC
Approved: Feb 28, 2003 | RLD: Yes | RS: No | Type: DISCN